FAERS Safety Report 6343461-3 (Version None)
Quarter: 2009Q3

REPORT INFORMATION
  Report Type: 
  Country: None (occurrence: None)
  Receive Date: 20090908
  Receipt Date: 20090826
  Transmission Date: 20100115
  Serious: Yes (Life-Threatening, Hospitalization)
  Sender: FDA-Public Use
  Company Number: US-PFIZER INC-2009226598

PATIENT
  Sex: Male

DRUGS (4)
  1. SUTENT [Suspect]
     Indication: RENAL CANCER METASTATIC
     Dosage: 25 MG, DAILY
     Dates: start: 20090526
  2. NEBIVOLOL [Concomitant]
     Indication: CARDIAC DISORDER
     Dosage: UNK
     Route: 048
  3. COZAAR [Concomitant]
     Indication: CARDIAC DISORDER
     Dosage: UNK
     Route: 048
  4. QUINIDINE [Concomitant]
     Indication: MUSCLE SPASMS
     Dosage: UNK
     Route: 048

REACTIONS (2)
  - EROSIVE OESOPHAGITIS [None]
  - GASTROINTESTINAL HAEMORRHAGE [None]
